FAERS Safety Report 7427615-0 (Version None)
Quarter: 2011Q2

REPORT INFORMATION
  Report Type: 
  Country: None (occurrence: None)
  Receive Date: 20110420
  Receipt Date: 20110409
  Transmission Date: 20111010
  Serious: Yes (Congenital Anomaly, Other)
  Sender: FDA-Public Use
  Company Number: BE-BRISTOL-MYERS SQUIBB COMPANY-15672116

PATIENT
  Sex: Male

DRUGS (4)
  1. CYCLOPHOSPHAMIDE [Suspect]
     Route: 064
  2. FLUOROURACIL [Suspect]
     Route: 064
  3. METHOTREXATE [Suspect]
     Route: 064
  4. EPIRUBICIN [Suspect]
     Route: 064

REACTIONS (4)
  - FOOT DEFORMITY [None]
  - MICROGNATHIA [None]
  - SYNDACTYLY [None]
  - CLINODACTYLY [None]
